FAERS Safety Report 13614302 (Version 2)
Quarter: 2018Q4

REPORT INFORMATION
  Report Type: Spontaneous
  Country: BR (occurrence: BR)
  Receive Date: 20170606
  Receipt Date: 20181121
  Transmission Date: 20190204
  Serious: Yes (Hospitalization, Other)
  Sender: FDA-Public Use
  Company Number: BR-B.I. PHARMACEUTICALS,INC./RIDGEFIELD-2017-BI-031181

PATIENT
  Age: 50 Year
  Sex: Female
  Weight: 95 kg

DRUGS (1)
  1. JARDIANCE [Suspect]
     Active Substance: EMPAGLIFLOZIN
     Indication: TYPE 2 DIABETES MELLITUS
     Route: 065
     Dates: start: 20160322, end: 20170503

REACTIONS (7)
  - Weight decreased [Unknown]
  - Sexual dysfunction [Not Recovered/Not Resolved]
  - Perineal necrosis [Recovered/Resolved]
  - Furuncle [Recovered/Resolved]
  - Anthrax [Recovered/Resolved]
  - Fournier^s gangrene [Recovered/Resolved with Sequelae]
  - Subcutaneous abscess [Recovered/Resolved]

NARRATIVE: CASE EVENT DATE: 201702
